FAERS Safety Report 15731192 (Version 1)
Quarter: 2018Q4

REPORT INFORMATION
  Report Type: Spontaneous
  Country: DE (occurrence: DE)
  Receive Date: 20181217
  Receipt Date: 20181217
  Transmission Date: 20190205
  Serious: Yes (Hospitalization)
  Sender: FDA-Public Use
  Company Number: DE-MYLANLABS-2018M1092931

PATIENT
  Age: 84 Year
  Sex: Male

DRUGS (3)
  1. TORASEMIDE [Suspect]
     Active Substance: TORSEMIDE
     Indication: OEDEMA PERIPHERAL
     Dosage: BIS ZU 4 TABLETTEN PRO TAG EMPFOHLEN
  2. ASPIRIN. [Suspect]
     Active Substance: ASPIRIN
     Indication: PRODUCT USED FOR UNKNOWN INDICATION
     Dosage: EINNAHME SEIT 40 JAHREN NACH US-VORGABE (80MG)
     Route: 048
  3. DIGIMERCK [Concomitant]
     Active Substance: DIGITOXIN
     Indication: PRODUCT USED FOR UNKNOWN INDICATION
     Dosage: UNK, DIGIMERK 0,7MG

REACTIONS (4)
  - Umbilical hernia [Recovered/Resolved]
  - Drug ineffective [Unknown]
  - Flatulence [Recovered/Resolved]
  - Constipation [Recovered/Resolved]
